FAERS Safety Report 5866261-7 (Version None)
Quarter: 2008Q3

REPORT INFORMATION
  Report Type: 
  Country: None (occurrence: None)
  Receive Date: 20080829
  Receipt Date: 20080820
  Transmission Date: 20090109
  Serious: Yes (Hospitalization)
  Sender: FDA-Public Use
  Company Number: KR-PFIZER INC-2008070656

PATIENT
  Age: 56 Year
  Sex: Male

DRUGS (8)
  1. SU-011,248 [Suspect]
     Indication: SMALL CELL LUNG CANCER EXTENSIVE STAGE
     Route: 048
     Dates: start: 20080714, end: 20080803
  2. CODEINE SUL TAB [Concomitant]
     Indication: PAIN
     Route: 048
     Dates: start: 20080804, end: 20080816
  3. MEGESTROL ACETATE [Concomitant]
     Route: 048
     Dates: start: 20080804, end: 20080816
  4. METOCLOPRAMIDE [Concomitant]
     Indication: ANTIEMETIC SUPPORTIVE CARE
     Route: 048
     Dates: start: 20080804, end: 20080816
  5. CHLORHEXIDINE GLUCONATE [Concomitant]
     Indication: ORAL INFECTION
     Dosage: TEXT:100 ML, 0.1%
     Route: 050
     Dates: start: 20080804, end: 20080816
  6. LACTULOSE [Concomitant]
     Indication: CONSTIPATION
     Route: 048
     Dates: start: 20080804, end: 20080810
  7. MAGNESIUM OXIDE [Concomitant]
     Indication: CONSTIPATION
     Route: 048
     Dates: start: 20080804, end: 20080816
  8. LEVOTHYROXINE [Concomitant]
     Indication: HYPOTHYROIDISM
     Route: 048
     Dates: start: 20080805, end: 20080816

REACTIONS (1)
  - ASCITES [None]
